FAERS Safety Report 7347378-7 (Version None)
Quarter: 2011Q1

REPORT INFORMATION
  Report Type: 
  Country: None (occurrence: None)
  Receive Date: 20110311
  Receipt Date: 20110301
  Transmission Date: 20110831
  Serious: Yes (Life-Threatening, Hospitalization)
  Sender: FDA-Public Use
  Company Number: US-BAYER-2011-014119

PATIENT
  Sex: Female
  Weight: 49 kg

DRUGS (7)
  1. REBIF [Concomitant]
     Indication: MULTIPLE SCLEROSIS
     Dosage: 44 ?G, TIW
     Route: 058
     Dates: start: 20031201
  2. CIPRO [Suspect]
     Indication: ANTIBIOTIC PROPHYLAXIS
     Dosage: UNK
     Dates: start: 20110202
  3. TRAZODONE HCL [Concomitant]
     Indication: INSOMNIA
     Dosage: UNK
  4. THYROID TAB [Concomitant]
     Indication: HYPOTHYROIDISM
  5. BACLOFEN [Concomitant]
     Indication: MUSCLE SPASMS
     Dosage: UNK
  6. ZANAFLEX [Interacting]
     Indication: MUSCLE SPASMS
     Dosage: UNK
  7. PAXIL [Concomitant]
     Indication: DEPRESSION
     Dosage: UNK

REACTIONS (8)
  - DISORIENTATION [None]
  - SHOCK [None]
  - CONSCIOUSNESS FLUCTUATING [None]
  - HEART RATE INCREASED [None]
  - GAIT DISTURBANCE [None]
  - COMMUNICATION DISORDER [None]
  - BLOOD PRESSURE DECREASED [None]
  - SEPSIS [None]
